FAERS Safety Report 9416845 (Version 2)
Quarter: 2013Q3

REPORT INFORMATION
  Report Type: Spontaneous
  Country: US (occurrence: None)
  Receive Date: 20130719
  Receipt Date: 20130917
  Transmission Date: 20140515
  Serious: Yes (Death, Other)
  Sender: FDA-Public Use
  Company Number: ADR-2013-01176

PATIENT
  Sex: Female

DRUGS (1)
  1. BACLOFEN [Suspect]
     Dosage: 450.1 MCG/DAY

REACTIONS (1)
  - Death [None]
